FAERS Safety Report 17404586 (Version 1)
Quarter: 2020Q1

REPORT INFORMATION
  Report Type: Spontaneous
  Country: JP (occurrence: JP)
  Receive Date: 20200211
  Receipt Date: 20200211
  Transmission Date: 20200409
  Serious: Yes (Hospitalization, Other)
  Sender: FDA-Public Use
  Company Number: JP-AMGEN-JPNSP2019120860

PATIENT
  Age: 59 Year
  Sex: Male

DRUGS (1)
  1. KYPROLIS [Suspect]
     Active Substance: CARFILZOMIB
     Indication: PLASMA CELL MYELOMA
     Dosage: 20 MILLIGRAM/SQ. METER
     Route: 041
     Dates: start: 20190625, end: 20190625

REACTIONS (3)
  - Oedema peripheral [Recovered/Resolved]
  - Cardiac disorder [Recovering/Resolving]
  - Respiratory failure [Recovered/Resolved]

NARRATIVE: CASE EVENT DATE: 20190630
